FAERS Safety Report 10230564 (Version 1)
Quarter: 2014Q2

REPORT INFORMATION
  Report Type: Spontaneous
  Country: BE (occurrence: BE)
  Receive Date: 20140611
  Receipt Date: 20140611
  Transmission Date: 20141212
  Serious: Yes (Death, Other)
  Sender: FDA-Public Use
  Company Number: PHHY2014BE069879

PATIENT
  Age: 55 Year
  Sex: Female

DRUGS (12)
  1. CARBOPLATIN [Suspect]
     Indication: PANCREATIC NEUROENDOCRINE TUMOUR
     Dosage: 5 MG/ML/MIN
     Route: 042
     Dates: start: 200902, end: 200908
  2. CARBOPLATIN [Suspect]
     Dates: end: 201009
  3. ETOPOSIDE [Suspect]
     Indication: PANCREATIC NEUROENDOCRINE TUMOUR
     Dosage: 100 MG/M2, UNK
     Route: 042
     Dates: start: 200902, end: 200908
  4. ETOPOSIDE [Suspect]
     Route: 042
     Dates: end: 201009
  5. BISOPROLOL [Concomitant]
     Indication: HYPERTENSION
     Dosage: 10 MG, UNK
  6. LANREOTIDE [Concomitant]
     Indication: PANCREATIC NEUROENDOCRINE TUMOUR
     Dosage: 120 MG/4 WEEKS
     Route: 058
     Dates: end: 200908
  7. LANREOTIDE [Concomitant]
     Dosage: 120 MG/4 WEEKS
     Route: 058
     Dates: start: 200909
  8. LANREOTIDE [Concomitant]
     Dosage: 120 MG/4 WEEKS
     Route: 058
     Dates: start: 200910, end: 201008
  9. LANREOTIDE [Concomitant]
     Dosage: 120 MG/4 WEEKS
     Route: 058
     Dates: start: 201008
  10. LANREOTIDE [Concomitant]
     Dosage: 120 MG/4 WEEKS
     Route: 058
     Dates: start: 201009
  11. LANREOTIDE [Concomitant]
     Dosage: 120 MG/4 WEEKS
     Route: 058
     Dates: start: 201010, end: 201011
  12. LANREOTIDE [Concomitant]
     Dosage: 120 MG/4 WEEKS
     Route: 058
     Dates: start: 201012

REACTIONS (18)
  - Death [Fatal]
  - Carcinoid syndrome [Unknown]
  - Tricuspid valve incompetence [Unknown]
  - Diarrhoea [Unknown]
  - Decreased appetite [Unknown]
  - Dyspnoea [Unknown]
  - Oedema peripheral [Unknown]
  - Flushing [Unknown]
  - Hepatomegaly [Unknown]
  - Carcinoid heart disease [Unknown]
  - Abdominal pain upper [Unknown]
  - Pancreatic neuroendocrine tumour [Unknown]
  - Metastases to bone [Unknown]
  - Metastases to liver [Unknown]
  - Malignant neoplasm progression [Unknown]
  - Nausea [Unknown]
  - Vomiting [Unknown]
  - Drug effect incomplete [Unknown]
